FAERS Safety Report 23673112 (Version 1)
Quarter: 2024Q1

REPORT INFORMATION
  Report Type: Spontaneous
  Country: IT (occurrence: IT)
  Receive Date: 20240326
  Receipt Date: 20240326
  Transmission Date: 20240409
  Serious: Yes (Other)
  Sender: FDA-Public Use
  Company Number: None

PATIENT
  Age: 55 Year
  Sex: Male

DRUGS (1)
  1. RUXIENCE [Suspect]
     Active Substance: RITUXIMAB-PVVR
     Indication: Multiple sclerosis
     Dosage: FREQ:6 MO; 1000 MG
     Route: 042
     Dates: start: 202110, end: 20230913

REACTIONS (2)
  - Pneumonitis [Unknown]
  - Off label use [Unknown]

NARRATIVE: CASE EVENT DATE: 20211001
